FAERS Safety Report 8577228-2 (Version None)
Quarter: 2012Q3

REPORT INFORMATION
  Report Type: 
  Country: None (occurrence: None)
  Receive Date: 20120807
  Receipt Date: 20120801
  Transmission Date: 20120928
  Serious: Yes (Hospitalization)
  Sender: FDA-Public Use
  Company Number: DE-JNJFOC-20120520439

PATIENT
  Sex: Female
  Weight: 33.3 kg

DRUGS (3)
  1. REMICADE [Suspect]
     Indication: CROHN'S DISEASE
     Route: 042
     Dates: start: 20120308
  2. AZATHIOPRINE [Concomitant]
  3. MESALAMINE [Concomitant]
     Route: 048

REACTIONS (1)
  - SOMATOFORM DISORDER [None]
